FAERS Safety Report 5489526-X (Version None)
Quarter: 2007Q4

REPORT INFORMATION
  Report Type: 
  Country: None (occurrence: None)
  Receive Date: 20071016
  Receipt Date: 20071016
  Transmission Date: 20080405
  Serious: Yes (Hospitalization)
  Sender: FDA-Public Use
  Company Number: None

PATIENT
  Age: 44 Year
  Sex: Male
  Weight: 67.13 kg

DRUGS (9)
  1. PROLEUKIN [Suspect]
     Indication: METASTATIC RENAL CELL CARCINOMA
     Dosage: 600,000 INTERNATIONAL  Q8HRS/D  1-5, 15-19  IV
     Route: 042
     Dates: start: 20070730, end: 20070819
  2. ATIVAN [Concomitant]
  3. ZANTAC [Concomitant]
  4. LORAZEPAM [Concomitant]
  5. BENADRYL [Concomitant]
  6. COMPAZINE [Concomitant]
  7. LOMOTIL [Concomitant]
  8. SARNA LOTION [Concomitant]
  9. EUCERIN LOTION [Concomitant]

REACTIONS (3)
  - BLOOD CREATININE INCREASED [None]
  - BLOOD UREA INCREASED [None]
  - HYPERCALCAEMIA [None]
